FAERS Safety Report 8120618 (Version 2)
Quarter: 2012Q4

REPORT INFORMATION
  Report Type: 
  Country: JP (occurrence: JP)
  Receive Date: 20110906
  Receipt Date: 20121119
  Transmission Date: 20130627
  Serious: Yes (Hospitalization, Disabling)
  Sender: FDA-Public Use
  Company Number: JP-JNJFOC-20110813534

PATIENT
  Age: 70 Year
  Sex: Female
  Weight: 34 kg

DRUGS (18)
  1. REMICADE [Suspect]
     Indication: RHEUMATOID ARTHRITIS
     Route: 042
     Dates: start: 20101216
  2. REMICADE [Suspect]
     Indication: RHEUMATOID ARTHRITIS
     Route: 042
     Dates: start: 20110106
  3. REMICADE [Suspect]
     Indication: RHEUMATOID ARTHRITIS
     Route: 042
     Dates: start: 20110203
  4. REMICADE [Suspect]
     Indication: RHEUMATOID ARTHRITIS
     Route: 042
     Dates: start: 20110331
  5. REMICADE [Suspect]
     Indication: RHEUMATOID ARTHRITIS
     Route: 042
     Dates: start: 20110429, end: 2011
  6. RHEUMATREX [Suspect]
     Indication: RHEUMATOID ARTHRITIS
     Route: 048
     Dates: start: 20100328, end: 2011
  7. MEDROL [Suspect]
     Indication: RHEUMATOID ARTHRITIS
     Route: 048
  8. FOLIAMIN [Concomitant]
     Indication: RHEUMATOID ARTHRITIS
     Route: 048
  9. GLAKAY [Concomitant]
     Indication: OSTEOPOROSIS
     Route: 048
  10. ONEALFA [Concomitant]
     Indication: OSTEOPOROSIS
     Route: 048
  11. FOSAMAC [Concomitant]
     Indication: OSTEOPOROSIS
     Route: 048
  12. PROCYLIN [Concomitant]
     Indication: SCLERODERMA
     Route: 048
  13. JUVELA [Concomitant]
     Indication: SCLERODERMA
     Route: 048
  14. METHYCOBAL [Concomitant]
     Indication: SCLERODERMA
     Route: 048
  15. SALIGREN [Concomitant]
     Indication: SJOGREN^S SYNDROME
     Route: 048
  16. NU-LOTAN [Concomitant]
     Indication: HYPERTENSION
     Route: 048
  17. CALSLOT [Concomitant]
     Indication: HYPERTENSION
     Route: 048
  18. PREDONINE [Concomitant]
     Route: 065

REACTIONS (2)
  - Pulmonary tuberculosis [Recovered/Resolved]
  - Rheumatoid arthritis [Unknown]
